FAERS Safety Report 11773615 (Version 1)
Quarter: 2015Q4

REPORT INFORMATION
  Report Type: Other
  Country: US (occurrence: US)
  Receive Date: 20151124
  Receipt Date: 20151124
  Transmission Date: 20160304
  Serious: Yes (Other)
  Sender: FDA-Public Use
  Company Number: US-COR_00429_2015

PATIENT
  Age: 36 Year
  Sex: Male

DRUGS (6)
  1. IFOSFAMIDE. [Suspect]
     Active Substance: IFOSFAMIDE
     Dosage: FOUR COMPLETE CYCLES
  2. ETOPOSIDE. [Suspect]
     Active Substance: ETOPOSIDE
     Indication: NEOPLASM MALIGNANT
     Dosage: FOUR COMPLETE CYCLES
  3. CISPLATIN. [Suspect]
     Active Substance: CISPLATIN
     Indication: NEOPLASM MALIGNANT
     Dosage: DOSE REDUCTION
  4. CISPLATIN. [Suspect]
     Active Substance: CISPLATIN
     Dosage: FOUR COMPLETE CYCLES
  5. ETOPOSIDE. [Suspect]
     Active Substance: ETOPOSIDE
     Dosage: DOSE REDUCTION
  6. IFOSFAMIDE. [Suspect]
     Active Substance: IFOSFAMIDE
     Indication: NEOPLASM MALIGNANT
     Dosage: DOSE REDUCTION

REACTIONS (9)
  - Neoplasm of orbit [None]
  - Bone marrow failure [Unknown]
  - Pulmonary mass [None]
  - Pneumonia [None]
  - Alpha 1 foetoprotein increased [None]
  - Vertebral lesion [None]
  - Carcinoembryonic antigen increased [None]
  - Ototoxicity [Unknown]
  - Neoplasm [None]
